FAERS Safety Report 8032999-9 (Version None)
Quarter: 2011Q4

REPORT INFORMATION
  Report Type: 
  Country: None (occurrence: None)
  Receive Date: 20111223
  Receipt Date: 20111213
  Transmission Date: 20120403
  Serious: Yes (Other)
  Sender: FDA-Public Use
  Company Number: 2011SP058160

PATIENT
  Age: 25 Year
  Sex: Female

DRUGS (1)
  1. LORATADINE [Suspect]
     Indication: PRURIGO
     Dosage: 10 MG;QD
     Dates: start: 20110901

REACTIONS (2)
  - PREMATURE DELIVERY [None]
  - MATERNAL EXPOSURE DURING PREGNANCY [None]
